FAERS Safety Report 7985171-2 (Version None)
Quarter: 2011Q4

REPORT INFORMATION
  Report Type: 
  Country: None (occurrence: None)
  Receive Date: 20111216
  Receipt Date: 20111205
  Transmission Date: 20120403
  Serious: Yes (Other)
  Sender: FDA-Public Use
  Company Number: US-JNJFOC-20111203086

PATIENT
  Age: 62 Year
  Sex: Female
  Weight: 56.7 kg

DRUGS (1)
  1. REMICADE [Suspect]
     Indication: RHEUMATOID ARTHRITIS
     Route: 042

REACTIONS (8)
  - FATIGUE [None]
  - RESPIRATORY TRACT INFECTION [None]
  - HEADACHE [None]
  - ABDOMINAL DISCOMFORT [None]
  - DIZZINESS [None]
  - DIARRHOEA [None]
  - DYSPNOEA [None]
  - RASH [None]
